FAERS Safety Report 10735582 (Version 2)
Quarter: 2015Q1

REPORT INFORMATION
  Report Type: Report from Study
  Country: US (occurrence: US)
  Receive Date: 20150126
  Receipt Date: 20150127
  Transmission Date: 20150721
  Serious: Yes (Other)
  Sender: FDA-Public Use
  Company Number: US-ASTRAZENECA-2013SE01029

PATIENT
  Age: 76 Year
  Sex: Male
  Weight: 90.7 kg

DRUGS (9)
  1. NEXIUM [Suspect]
     Active Substance: ESOMEPRAZOLE MAGNESIUM
     Indication: IRRITABLE BOWEL SYNDROME
     Route: 048
  2. NEXIUM [Suspect]
     Active Substance: ESOMEPRAZOLE MAGNESIUM
     Indication: ABDOMINAL DISCOMFORT
     Route: 048
  3. PRILOSEC [Suspect]
     Active Substance: OMEPRAZOLE MAGNESIUM
     Indication: GASTROOESOPHAGEAL REFLUX DISEASE
     Route: 048
     Dates: start: 2012, end: 2012
  4. CHOLESTEROL REDUCING MEDICATIONS [Concomitant]
  5. NEXIUM [Suspect]
     Active Substance: ESOMEPRAZOLE MAGNESIUM
     Indication: GASTROOESOPHAGEAL REFLUX DISEASE
     Route: 048
  6. NEXIUM [Suspect]
     Active Substance: ESOMEPRAZOLE MAGNESIUM
     Indication: DIVERTICULITIS
     Route: 048
  7. NEXIUM [Suspect]
     Active Substance: ESOMEPRAZOLE MAGNESIUM
     Indication: OESOPHAGITIS
     Route: 048
  8. CRESTOR [Suspect]
     Active Substance: ROSUVASTATIN CALCIUM
     Indication: BLOOD CHOLESTEROL ABNORMAL
     Route: 048
  9. STATINS [Concomitant]
     Active Substance: UNSPECIFIED INGREDIENT

REACTIONS (28)
  - Adverse event [Unknown]
  - Back pain [Unknown]
  - Angina pectoris [Unknown]
  - Product use issue [Unknown]
  - Cardiac infection [Unknown]
  - Gastrooesophageal reflux disease [Unknown]
  - Dyspnoea [Unknown]
  - Muscular weakness [Unknown]
  - Poor peripheral circulation [Unknown]
  - Carotid artery occlusion [Unknown]
  - Balance disorder [Unknown]
  - Intentional product misuse [Unknown]
  - Peripheral arterial occlusive disease [Unknown]
  - Neuropathy peripheral [Unknown]
  - Sensory loss [Unknown]
  - Paraesthesia [Unknown]
  - Muscle spasms [Unknown]
  - Drug effect incomplete [Unknown]
  - Chronic lymphocytic leukaemia [Unknown]
  - Cancer in remission [Unknown]
  - Cardiac disorder [Unknown]
  - Hepatic enzyme increased [Unknown]
  - Abdominal discomfort [Unknown]
  - Hypoaesthesia [Unknown]
  - Wound [Unknown]
  - Arterial disorder [Unknown]
  - Discomfort [Unknown]
  - Drug ineffective [Unknown]
